FAERS Safety Report 13739035 (Version 1)
Quarter: 2017Q3

REPORT INFORMATION
  Report Type: Spontaneous
  Country: US (occurrence: US)
  Receive Date: 20170710
  Receipt Date: 20170710
  Transmission Date: 20171127
  Serious: Yes (Other)
  Sender: FDA-Public Use
  Company Number: US-SAOL THERAPEUTICS-2017SAO00170

PATIENT
  Age: 36 Year
  Sex: Male
  Weight: 53.61 kg

DRUGS (1)
  1. BACLOFEN. [Suspect]
     Active Substance: BACLOFEN
     Dosage: 375.7 ?G, \DAY
     Route: 037
     Dates: end: 20170123

REACTIONS (4)
  - Muscle spasticity [Recovering/Resolving]
  - Therapy non-responder [Recovering/Resolving]
  - Complication associated with device [Unknown]
  - Device infusion issue [Unknown]

NARRATIVE: CASE EVENT DATE: 20170130
